FAERS Safety Report 8929047 (Version 1)
Quarter: 2012Q4

REPORT INFORMATION
  Report Type: 
  Country: BE (occurrence: BE)
  Receive Date: 20121128
  Receipt Date: 20121128
  Transmission Date: 20130627
  Serious: Yes (Other)
  Sender: FDA-Public Use
  Company Number: BE-JNJFOC-20121112518

PATIENT
  Sex: Male

DRUGS (10)
  1. XARELTO [Suspect]
     Indication: CEREBROVASCULAR ACCIDENT PROPHYLAXIS
     Route: 048
  2. XARELTO [Suspect]
     Indication: CEREBROVASCULAR ACCIDENT PROPHYLAXIS
     Route: 048
     Dates: start: 20121018, end: 20121022
  3. XARELTO [Suspect]
     Indication: ATRIAL FIBRILLATION
     Route: 048
  4. XARELTO [Suspect]
     Indication: ATRIAL FIBRILLATION
     Route: 048
     Dates: start: 20121018, end: 20121022
  5. CLEXANE [Suspect]
     Indication: PRODUCT USED FOR UNKNOWN INDICATION
     Route: 065
     Dates: start: 20121014, end: 20121017
  6. BISOPROLOL [Concomitant]
     Indication: HYPERTENSION
     Route: 065
  7. ZYLORIC [Concomitant]
     Indication: GOUT
     Route: 065
  8. OMIC [Concomitant]
     Indication: PROSTATITIS
     Route: 065
  9. DAONIL [Concomitant]
     Indication: TYPE 2 DIABETES MELLITUS
     Route: 065
  10. METFORMAX [Concomitant]
     Indication: TYPE 2 DIABETES MELLITUS
     Route: 065

REACTIONS (2)
  - Renal failure [Unknown]
  - Haematuria [Recovered/Resolved]
